FAERS Safety Report 6146062-5 (Version None)
Quarter: 2009Q2

REPORT INFORMATION
  Report Type: 
  Country: None (occurrence: None)
  Receive Date: 20090406
  Receipt Date: 20090406
  Transmission Date: 20091009
  Serious: Yes (Life-Threatening, Hospitalization, Disabling)
  Sender: FDA-Public Use
  Company Number: None

PATIENT
  Age: 30 Year
  Sex: Male
  Weight: 78.0187 kg

DRUGS (1)
  1. HALDOL [Suspect]
     Indication: PSYCHOTIC DISORDER
     Dosage: IM
     Route: 030
     Dates: start: 20090326

REACTIONS (8)
  - BLOOD PRESSURE DECREASED [None]
  - DYSPHAGIA [None]
  - FEELING COLD [None]
  - HOT FLUSH [None]
  - MUSCLE SPASMS [None]
  - MUSCULOSKELETAL PAIN [None]
  - NECK PAIN [None]
  - POSTURE ABNORMAL [None]
